FAERS Safety Report 14270190 (Version 3)
Quarter: 2018Q3

REPORT INFORMATION
  Report Type: Spontaneous
  Country: JP (occurrence: JP)
  Receive Date: 20171211
  Receipt Date: 20180806
  Transmission Date: 20181010
  Serious: Yes (Hospitalization, Other)
  Sender: FDA-Public Use
  Company Number: JP-OTSUKA-007367

PATIENT
  Age: 37 Year
  Sex: Female
  Weight: 50 kg

DRUGS (19)
  1. LULLAN [Suspect]
     Active Substance: PEROSPIRONE HYDROCHLORIDE
     Indication: AFFECT LABILITY
     Dosage: 8 MG, QD
     Route: 048
  2. LULLAN [Suspect]
     Active Substance: PEROSPIRONE HYDROCHLORIDE
     Indication: PERSONALITY DISORDER
  3. ABILIFY [Suspect]
     Active Substance: ARIPIPRAZOLE
     Dosage: 18 MG, QD
     Route: 048
     Dates: start: 20070328, end: 20070731
  4. MIRADOL [Suspect]
     Active Substance: SULPIRIDE
     Indication: PERSONALITY DISORDER
  5. BENZALIN [Suspect]
     Active Substance: NITRAZEPAM
     Indication: INSOMNIA
     Dosage: 5 MG, QD
     Route: 048
  6. DEPROMEL [Suspect]
     Active Substance: FLUVOXAMINE
     Indication: AFFECT LABILITY
     Dosage: 25 MG, BID
     Route: 048
  7. LULLAN [Suspect]
     Active Substance: PEROSPIRONE HYDROCHLORIDE
     Indication: DEPRESSIVE SYMPTOM
  8. SEROQUEL [Suspect]
     Active Substance: QUETIAPINE FUMARATE
     Indication: DEPRESSIVE SYMPTOM
  9. SEROQUEL [Suspect]
     Active Substance: QUETIAPINE FUMARATE
     Indication: PERSONALITY DISORDER
  10. MIRADOL [Suspect]
     Active Substance: SULPIRIDE
     Indication: DEPRESSIVE SYMPTOM
  11. SEROQUEL [Suspect]
     Active Substance: QUETIAPINE FUMARATE
     Indication: AFFECT LABILITY
     Dosage: 25 MG, QD
     Route: 048
  12. DEPROMEL [Suspect]
     Active Substance: FLUVOXAMINE
     Indication: DEPRESSIVE SYMPTOM
  13. ABILIFY [Suspect]
     Active Substance: ARIPIPRAZOLE
     Indication: AFFECT LABILITY
     Dosage: 21 MG, QD
     Route: 048
     Dates: start: 20070801, end: 20091208
  14. ABILIFY [Suspect]
     Active Substance: ARIPIPRAZOLE
     Indication: PERSONALITY DISORDER
     Dosage: 30 MG, QD
     Route: 048
     Dates: start: 20061011, end: 20061024
  15. ABILIFY [Suspect]
     Active Substance: ARIPIPRAZOLE
     Dosage: 24 MG, QD
     Route: 048
     Dates: start: 20061108, end: 20070327
  16. ABILIFY [Suspect]
     Active Substance: ARIPIPRAZOLE
     Dosage: 6 MG, QD
     Route: 048
     Dates: start: 20100107, end: 20100720
  17. ABILIFY [Suspect]
     Active Substance: ARIPIPRAZOLE
     Indication: DEPRESSIVE SYMPTOM
     Dosage: 12 MG, QD
     Route: 048
     Dates: start: 20060913, end: 20061010
  18. MIRADOL [Suspect]
     Active Substance: SULPIRIDE
     Indication: AFFECT LABILITY
     Dosage: 50 MG, TID
     Route: 048
  19. DEPROMEL [Suspect]
     Active Substance: FLUVOXAMINE
     Indication: PERSONALITY DISORDER

REACTIONS (2)
  - Abortion spontaneous [Recovered/Resolved]
  - Maternal exposure during pregnancy [Unknown]

NARRATIVE: CASE EVENT DATE: 20090808
